FAERS Safety Report 4677683-4 (Version None)
Quarter: 2005Q2

REPORT INFORMATION
  Report Type: 
  Country: None (occurrence: None)
  Receive Date: 20050531
  Receipt Date: 20050303
  Transmission Date: 20051028
  Serious: Yes (Hospitalization, Disabling, Other)
  Sender: FDA-Public Use
  Company Number: US-MERCK-0503USA00837

PATIENT
  Age: 51 Year
  Sex: Male

DRUGS (9)
  1. VIOXX [Suspect]
     Route: 048
     Dates: start: 20000818, end: 20010101
  2. VIOXX [Suspect]
     Route: 048
     Dates: start: 20000101
  3. ASPIRIN [Concomitant]
     Route: 048
  4. ISOSORBIDE MONONITRATE [Concomitant]
     Route: 048
  5. ZOCOR [Concomitant]
     Route: 048
  6. SULAR [Concomitant]
     Route: 048
  7. HYDROCHLOROTHIAZIDE [Concomitant]
     Route: 048
  8. MICRO-K [Concomitant]
     Route: 048
  9. PEPCID [Concomitant]
     Route: 048

REACTIONS (12)
  - ANGINA UNSTABLE [None]
  - CHEST DISCOMFORT [None]
  - DIABETES MELLITUS [None]
  - DYSPNOEA [None]
  - FATIGUE [None]
  - GASTROOESOPHAGEAL REFLUX DISEASE [None]
  - HOMOCYSTINAEMIA [None]
  - HYPOKALAEMIA [None]
  - LEFT VENTRICULAR FAILURE [None]
  - MYOCARDIAL INFARCTION [None]
  - NODAL ARRHYTHMIA [None]
  - PAIN [None]
